FAERS Safety Report 9613086 (Version 2)
Quarter: 2013Q4

REPORT INFORMATION
  Report Type: Spontaneous
  Country: CN (occurrence: CN)
  Receive Date: 20131010
  Receipt Date: 20131010
  Transmission Date: 20140711
  Serious: Yes (Hospitalization, Other)
  Sender: FDA-Public Use
  Company Number: CN-BANPHARM-20131778

PATIENT
  Age: 41 Year
  Sex: Male

DRUGS (2)
  1. VALPROIC ACID UNKNOWN PRODUCT [Suspect]
     Indication: CONVULSION
     Dosage: 20 MG/KG, QD,
  2. VALPROIC ACID UNKNOWN PRODUCT [Suspect]
     Dosage: 20 MG/KG, QD,
     Route: 048

REACTIONS (2)
  - Cerebral haemorrhage [Recovered/Resolved]
  - Hypofibrinogenaemia [Recovered/Resolved]
